FAERS Safety Report 14948041 (Version 2)
Quarter: 2018Q2

REPORT INFORMATION
  Report Type: Spontaneous
  Country: AT (occurrence: AT)
  Receive Date: 20180529
  Receipt Date: 20180601
  Transmission Date: 20180711
  Serious: Yes (Other)
  Sender: FDA-Public Use
  Company Number: AT-BAUSCH-BL-2018-014758

PATIENT
  Age: 9 Decade
  Sex: Male

DRUGS (57)
  1. DEXAMETHASONE. [Suspect]
     Active Substance: DEXAMETHASONE
     Dosage: 1 WEEK
     Route: 065
     Dates: start: 20150311
  2. DEXAMETHASONE. [Suspect]
     Active Substance: DEXAMETHASONE
     Dosage: 1 WEEK
     Route: 065
     Dates: start: 20170114
  3. DEXAMETHASONE. [Suspect]
     Active Substance: DEXAMETHASONE
     Dosage: 1 WEEK
     Route: 065
     Dates: start: 20170710
  4. DEXAMETHASONE. [Suspect]
     Active Substance: DEXAMETHASONE
     Dosage: 1 WEEK
     Route: 065
     Dates: start: 20170907
  5. REVLIMID [Suspect]
     Active Substance: LENALIDOMIDE
     Indication: PLASMA CELL MYELOMA
     Dosage: REDUCED DOSE
     Route: 048
     Dates: start: 2013
  6. REVLIMID [Suspect]
     Active Substance: LENALIDOMIDE
     Dosage: 2 DAYS
     Route: 048
     Dates: start: 20151021
  7. LOVENOX [Concomitant]
     Active Substance: ENOXAPARIN SODIUM
     Route: 065
     Dates: start: 201403
  8. DEXAMETHASONE. [Suspect]
     Active Substance: DEXAMETHASONE
     Dosage: 1 WEEK
     Route: 065
     Dates: start: 20150923
  9. DEXAMETHASONE. [Suspect]
     Active Substance: DEXAMETHASONE
     Dosage: 1 WEEK
     Route: 065
     Dates: start: 20171006, end: 201801
  10. REVLIMID [Suspect]
     Active Substance: LENALIDOMIDE
     Dosage: 2 DAYS
     Route: 048
     Dates: start: 20150826
  11. REVLIMID [Suspect]
     Active Substance: LENALIDOMIDE
     Dosage: 2 DAYS
     Route: 048
     Dates: start: 20150923
  12. REVLIMID [Suspect]
     Active Substance: LENALIDOMIDE
     Dosage: 2 DAYS
     Route: 048
     Dates: start: 20160408
  13. REVLIMID [Suspect]
     Active Substance: LENALIDOMIDE
     Dosage: 2 DAYS
     Route: 048
     Dates: start: 20160506
  14. REVLIMID [Suspect]
     Active Substance: LENALIDOMIDE
     Dosage: 2 DAYS
     Route: 048
     Dates: start: 20170810
  15. XGEVA [Concomitant]
     Active Substance: DENOSUMAB
     Indication: PAIN
     Dosage: 4 WEEKS
     Dates: start: 20131115
  16. DEXAMETHASONE. [Suspect]
     Active Substance: DEXAMETHASONE
     Route: 065
     Dates: start: 20131201
  17. DEXAMETHASONE. [Suspect]
     Active Substance: DEXAMETHASONE
     Dosage: 1 WEEK
     Route: 065
     Dates: start: 20140101
  18. DEXAMETHASONE. [Suspect]
     Active Substance: DEXAMETHASONE
     Dosage: 1 WEEK
     Route: 065
     Dates: start: 20160603
  19. REVLIMID [Suspect]
     Active Substance: LENALIDOMIDE
     Dosage: 2 DAYS
     Route: 048
     Dates: start: 20170907
  20. DEXAMETHASONE. [Suspect]
     Active Substance: DEXAMETHASONE
     Dosage: 1 WEEK
     Route: 065
     Dates: start: 20140303
  21. DEXAMETHASONE. [Suspect]
     Active Substance: DEXAMETHASONE
     Dosage: 1 WEEK
     Route: 065
     Dates: start: 20160506
  22. REVLIMID [Suspect]
     Active Substance: LENALIDOMIDE
     Dosage: 2 DAYS
     Route: 048
     Dates: start: 20140302
  23. REVLIMID [Suspect]
     Active Substance: LENALIDOMIDE
     Dosage: 2 DAYS
     Route: 048
     Dates: start: 20150826
  24. LOVENOX [Concomitant]
     Active Substance: ENOXAPARIN SODIUM
     Indication: THROMBOSIS PROPHYLAXIS
     Route: 065
     Dates: start: 201401
  25. XGEVA [Concomitant]
     Active Substance: DENOSUMAB
     Dosage: DOSE: 1 (UNSPECIFIED) IN 3 MONTHS
     Dates: start: 201707
  26. DEXAMETHASONE. [Suspect]
     Active Substance: DEXAMETHASONE
     Indication: PLASMA CELL MYELOMA
     Dosage: REDUCED DOSE
     Route: 065
     Dates: start: 2013
  27. DEXAMETHASONE. [Suspect]
     Active Substance: DEXAMETHASONE
     Dosage: 1 WEEK
     Route: 065
     Dates: start: 20140602
  28. DEXAMETHASONE. [Suspect]
     Active Substance: DEXAMETHASONE
     Dosage: 1 WEEK
     Route: 065
     Dates: start: 20151021
  29. REVLIMID [Suspect]
     Active Substance: LENALIDOMIDE
     Dosage: 2 DAYS
     Route: 048
     Dates: start: 20130112
  30. REVLIMID [Suspect]
     Active Substance: LENALIDOMIDE
     Dosage: 2 DAYS
     Route: 048
     Dates: start: 20160211
  31. REVLIMID [Suspect]
     Active Substance: LENALIDOMIDE
     Dosage: 2 DAYS
     Route: 048
     Dates: start: 20160603, end: 201801
  32. XGEVA [Concomitant]
     Active Substance: DENOSUMAB
     Dosage: 6 WEEKS
     Dates: start: 201507, end: 201512
  33. XARELTO [Concomitant]
     Active Substance: RIVAROXABAN
     Indication: THROMBOSIS PROPHYLAXIS
     Route: 065
     Dates: start: 201507
  34. DEXAMETHASONE. [Suspect]
     Active Substance: DEXAMETHASONE
     Dosage: 1 WEEK
     Route: 065
     Dates: start: 20140203
  35. DEXAMETHASONE. [Suspect]
     Active Substance: DEXAMETHASONE
     Dosage: 1 WEEK
     Route: 065
     Dates: start: 20150727
  36. DEXAMETHASONE. [Suspect]
     Active Substance: DEXAMETHASONE
     Dosage: 1 WEEK
     Route: 065
     Dates: start: 20150826
  37. DEXAMETHASONE. [Suspect]
     Active Substance: DEXAMETHASONE
     Dosage: 1 WEEK
     Route: 065
     Dates: start: 20151116
  38. DEXAMETHASONE. [Suspect]
     Active Substance: DEXAMETHASONE
     Dosage: 1 WEEK
     Route: 065
     Dates: start: 20160211
  39. REVLIMID [Suspect]
     Active Substance: LENALIDOMIDE
     Dosage: 2 DAYS
     Route: 048
     Dates: start: 20131015
  40. REVLIMID [Suspect]
     Active Substance: LENALIDOMIDE
     Dosage: 2 DAYS
     Route: 048
     Dates: start: 20140406
  41. REVLIMID [Suspect]
     Active Substance: LENALIDOMIDE
     Dosage: 2 DAYS
     Route: 048
     Dates: start: 20151214
  42. XGEVA [Concomitant]
     Active Substance: DENOSUMAB
     Dosage: 6 WEEKS
     Dates: start: 201606
  43. XARELTO [Concomitant]
     Active Substance: RIVAROXABAN
     Route: 065
     Dates: start: 201709
  44. DEXAMETHASONE. [Suspect]
     Active Substance: DEXAMETHASONE
     Dosage: 1 WEEK
     Route: 065
     Dates: start: 20150907
  45. REVLIMID [Suspect]
     Active Substance: LENALIDOMIDE
     Dosage: 2 DAYS
     Route: 048
     Dates: start: 20140101
  46. REVLIMID [Suspect]
     Active Substance: LENALIDOMIDE
     Dosage: 2 DAYS
     Route: 048
     Dates: start: 20150727
  47. REVLIMID [Suspect]
     Active Substance: LENALIDOMIDE
     Dosage: 2 DAYS
     Route: 048
     Dates: start: 20171006
  48. DEXAMETHASONE. [Suspect]
     Active Substance: DEXAMETHASONE
     Indication: PLASMA CELL MYELOMA
     Route: 065
     Dates: start: 20131015
  49. DEXAMETHASONE. [Suspect]
     Active Substance: DEXAMETHASONE
     Dosage: 1 WEEK
     Route: 065
     Dates: start: 20140406
  50. DEXAMETHASONE. [Suspect]
     Active Substance: DEXAMETHASONE
     Dosage: 1 WEEK
     Route: 065
     Dates: start: 20151210
  51. DEXAMETHASONE. [Suspect]
     Active Substance: DEXAMETHASONE
     Dosage: 1 WEEK
     Route: 065
     Dates: start: 20160408
  52. DEXAMETHASONE. [Suspect]
     Active Substance: DEXAMETHASONE
     Dosage: 1 WEEK
     Route: 065
     Dates: start: 20170810
  53. REVLIMID [Suspect]
     Active Substance: LENALIDOMIDE
     Dosage: 2 DAYS
     Route: 048
     Dates: start: 20140203
  54. REVLIMID [Suspect]
     Active Substance: LENALIDOMIDE
     Dosage: 2 DAYS
     Route: 048
     Dates: start: 20140602
  55. REVLIMID [Suspect]
     Active Substance: LENALIDOMIDE
     Dosage: 2 DAYS
     Route: 048
     Dates: start: 20151116
  56. REVLIMID [Suspect]
     Active Substance: LENALIDOMIDE
     Dosage: 2 DAYS
     Route: 048
     Dates: start: 20160311
  57. REVLIMID [Suspect]
     Active Substance: LENALIDOMIDE
     Dosage: 2 DAYS
     Route: 048
     Dates: start: 20170710

REACTIONS (2)
  - Plasma cell myeloma [Unknown]
  - Influenza [Unknown]

NARRATIVE: CASE EVENT DATE: 201802
